FAERS Safety Report 8216458-6 (Version None)
Quarter: 2012Q1

REPORT INFORMATION
  Report Type: 
  Country: None (occurrence: None)
  Receive Date: 20120316
  Receipt Date: 20120306
  Transmission Date: 20120608
  Serious: Yes (Other)
  Sender: FDA-Public Use
  Company Number: US-MYLANLABS-2012S1003312

PATIENT
  Age: 21 Year
  Sex: Male
  Weight: 68.04 kg

DRUGS (5)
  1. CLOZAPINE [Suspect]
     Route: 048
  2. CLOZAPINE [Suspect]
     Route: 048
  3. CLOZAPINE [Suspect]
     Indication: SCHIZOPHRENIA, PARANOID TYPE
     Route: 048
     Dates: start: 20080220
  4. CLOZAPINE [Suspect]
     Route: 048
     Dates: start: 20120208
  5. CLOZAPINE [Suspect]
     Route: 048
     Dates: start: 20080101, end: 20120207

REACTIONS (6)
  - PARANOIA [None]
  - AGITATION [None]
  - MEMORY IMPAIRMENT [None]
  - DISTURBANCE IN ATTENTION [None]
  - GRANULOCYTOPENIA [None]
  - EYE IRRITATION [None]
